FAERS Safety Report 9843987 (Version 1)
Quarter: 2013Q4

REPORT INFORMATION
  Report Type: Spontaneous
  Country: US (occurrence: None)
  Receive Date: 20131223
  Receipt Date: 20131223
  Transmission Date: 20140711
  Serious: No
  Sender: FDA-Public Use
  Company Number: 1000050607

PATIENT
  Age: 83 Year
  Sex: Male

DRUGS (5)
  1. LINZESS (LINACLOTIDE) (145 MICROGRAM, CAPSULES) [Suspect]
     Indication: CONSTIPATION
     Route: 048
     Dates: start: 201309
  2. LEVOXYL (LEVOTHYROXINE SODIUM) (LEVOTHYROXINE SODIUM) [Concomitant]
  3. TRICOR (FENOFIBRATE) (FENOFIBRATE) [Concomitant]
  4. FINASTERIDE (FINASTERIDE) [Concomitant]
  5. CHOLECALCIFEROL (COLECALCIFEROL) (COLECALCIFEROL) [Concomitant]

REACTIONS (2)
  - Pruritus [None]
  - Eye pruritus [None]
